FAERS Safety Report 22321904 (Version 1)
Quarter: 2023Q2

REPORT INFORMATION
  Report Type: Spontaneous
  Country: US (occurrence: US)
  Receive Date: 20230516
  Receipt Date: 20230516
  Transmission Date: 20230721
  Serious: Yes (Hospitalization, Other)
  Sender: FDA-Public Use
  Company Number: US-JNJFOC-20230521272

PATIENT
  Sex: Female

DRUGS (1)
  1. TECLISTAMAB [Suspect]
     Active Substance: TECLISTAMAB
     Indication: Plasma cell myeloma refractory
     Dosage: RECEIVING TECVAYLI STEP-UP-DOSE?THERAPY WAS NOT PART OF THE CAR-T THERAPY.
     Route: 058

REACTIONS (1)
  - Bone pain [Recovered/Resolved]
